FAERS Safety Report 8157643-1 (Version None)
Quarter: 2012Q1

REPORT INFORMATION
  Report Type: 
  Country: None (occurrence: None)
  Receive Date: 20120217
  Receipt Date: 20120214
  Transmission Date: 20120608
  Serious: Yes (Hospitalization, Other)
  Sender: FDA-Public Use
  Company Number: 2009-200464-NL

PATIENT
  Age: 30 Year
  Sex: Female
  Weight: 72.5755 kg

DRUGS (8)
  1. NORCO [Concomitant]
  2. XANAX [Concomitant]
  3. SKELAXIN [Concomitant]
  4. AMOXICILLIN [Concomitant]
  5. LEXAPRO [Concomitant]
  6. IBUPROFEN (ADVIL) [Concomitant]
  7. BACLOFEN [Concomitant]
  8. NUVARING [Suspect]
     Indication: CONTRACEPTION
     Dosage: 1 DF
     Dates: start: 20060101, end: 20080301

REACTIONS (20)
  - MUSCULAR WEAKNESS [None]
  - PHARYNGITIS STREPTOCOCCAL [None]
  - RECTAL HAEMORRHAGE [None]
  - PAIN IN EXTREMITY [None]
  - PARAESTHESIA [None]
  - INSOMNIA [None]
  - PELVIC PAIN [None]
  - DEPRESSION [None]
  - ACUTE SINUSITIS [None]
  - MIGRAINE [None]
  - POLLAKIURIA [None]
  - HYPOKALAEMIA [None]
  - MENORRHAGIA [None]
  - HYPOAESTHESIA [None]
  - ANXIETY [None]
  - INJURY [None]
  - PULMONARY EMBOLISM [None]
  - BACK PAIN [None]
  - SYNCOPE [None]
  - IRRITABLE BOWEL SYNDROME [None]
